FAERS Safety Report 22269393 (Version 1)
Quarter: 2023Q2

REPORT INFORMATION
  Report Type: Report from Study
  Country: AR (occurrence: AR)
  Receive Date: 20230501
  Receipt Date: 20230501
  Transmission Date: 20230721
  Serious: Yes (Other)
  Sender: FDA-Public Use
  Company Number: AR-002147023-NVSC2023AR096094

PATIENT
  Age: 69 Year
  Sex: Female

DRUGS (2)
  1. KISQALI [Suspect]
     Active Substance: RIBOCICLIB
     Indication: Breast cancer metastatic
     Dosage: 600 MG, QD
     Route: 065
     Dates: start: 20230327
  2. FULVESTRANT [Suspect]
     Active Substance: FULVESTRANT
     Indication: Breast cancer metastatic
     Dosage: 250 MG, QD
     Route: 065
     Dates: start: 20230327

REACTIONS (4)
  - Haemorrhage [Unknown]
  - Skin lesion [Unknown]
  - Acne [Unknown]
  - Nodule [Unknown]

NARRATIVE: CASE EVENT DATE: 20230403
